FAERS Safety Report 16414901 (Version 1)
Quarter: 2019Q2

REPORT INFORMATION
  Report Type: Spontaneous
  Country: US (occurrence: US)
  Receive Date: 20190611
  Receipt Date: 20190611
  Transmission Date: 20190711
  Serious: Yes (Other)
  Sender: FDA-Public Use
  Company Number: US-BAYER-2019-110045

PATIENT
  Age: 49 Year
  Sex: Male

DRUGS (1)
  1. SORAFENIB (RAF KINASE INHIBITOR) [Suspect]
     Active Substance: SORAFENIB
     Indication: ADENOCARCINOMA

REACTIONS (6)
  - Metastatic neoplasm [None]
  - Metastases to central nervous system [None]
  - Off label use [None]
  - Product use in unapproved indication [None]
  - Adenocarcinoma [None]
  - Adverse drug reaction [None]
